FAERS Safety Report 18795034 (Version 1)
Quarter: 2021Q1

REPORT INFORMATION
  Report Type: Spontaneous
  Country: US (occurrence: US)
  Receive Date: 20210127
  Receipt Date: 20210127
  Transmission Date: 20210419
  Serious: Yes (Death)
  Sender: FDA-Public Use
  Company Number: None

PATIENT
  Age: 62 Year
  Sex: Female
  Weight: 50 kg

DRUGS (22)
  1. BREWERS YEAST [Concomitant]
     Active Substance: SACCHAROMYCES CEREVISIAE
  2. TRACE MINERALS [Concomitant]
  3. TYLENOL [Concomitant]
     Active Substance: ACETAMINOPHEN
  4. CBD [Concomitant]
     Active Substance: CANNABIDIOL
  5. ADVIL [Concomitant]
     Active Substance: IBUPROFEN
  6. MODIFIED CITRUS PECTIN [Concomitant]
  7. MAGTEIN [Concomitant]
  8. VITAMIN E [Concomitant]
     Active Substance: .ALPHA.-TOCOPHEROL
  9. MELATONIN [Concomitant]
     Active Substance: MELATONIN
  10. LIDOPATCH PAIN RELIEF [Concomitant]
     Active Substance: LIDOCAINE\MENTHOL
  11. PROBIOTIC 15 BILLION CELL [Concomitant]
  12. BIOTIN [Concomitant]
     Active Substance: BIOTIN
  13. IODORAL [Concomitant]
     Active Substance: IODINE\POTASSIUM IODIDE
  14. CAPECITABINE. [Suspect]
     Active Substance: CAPECITABINE
     Indication: BREAST CANCER
     Route: 048
     Dates: start: 20210112, end: 20210127
  15. FENTANYL. [Concomitant]
     Active Substance: FENTANYL
  16. MAGNESIUM OXIDE. [Concomitant]
     Active Substance: MAGNESIUM OXIDE
  17. IRON [Concomitant]
     Active Substance: IRON
  18. VITAMIN B COMPLEX [Concomitant]
     Active Substance: CYANOCOBALAMIN\DEXPANTHENOL\NIACINAMIDE\PYRIDOXINE HYDROCHLORIDE\RIBOFLAVIN 5^-PHOSPHATE SODIUM\THIAMINE HYDROCHLORIDE\VITAMIN B COMPLEX
  19. MYCOPHYTO COMPLEX [Concomitant]
  20. HYDROMORPHONE HCL [Concomitant]
     Active Substance: HYDROMORPHONE HYDROCHLORIDE
  21. VITAMIN C PLUS [Concomitant]
  22. VITAMIN D3 [Concomitant]
     Active Substance: CHOLECALCIFEROL

REACTIONS (1)
  - Death [None]
